FAERS Safety Report 6327367-1 (Version None)
Quarter: 2009Q3

REPORT INFORMATION
  Report Type: 
  Country: None (occurrence: None)
  Receive Date: 20090818
  Receipt Date: 20090422
  Transmission Date: 20100115
  Serious: No
  Sender: FDA-Public Use
  Company Number: WAES 0904USA03585

PATIENT
  Age: 49 Year
  Sex: Male

DRUGS (4)
  1. JANUVIA [Suspect]
     Indication: DIABETES MELLITUS
     Dosage: 100 MG/DAILY/PO
     Route: 048
     Dates: end: 20090418
  2. COUMADIN [Concomitant]
  3. PRAVACHOL [Concomitant]
  4. METOPROLOL [Concomitant]

REACTIONS (3)
  - AGITATION [None]
  - INSOMNIA [None]
  - NAUSEA [None]
